FAERS Safety Report 23916665 (Version 1)
Quarter: 2024Q2

REPORT INFORMATION
  Report Type: Spontaneous
  Country: PL (occurrence: None)
  Receive Date: 20240529
  Receipt Date: 20240529
  Transmission Date: 20240716
  Serious: Yes (Hospitalization)
  Sender: FDA-Public Use
  Company Number: 2024A123843

PATIENT
  Age: 64 Year
  Sex: Female

DRUGS (15)
  1. OMEPRAZOLE [Suspect]
     Active Substance: DONEPEZIL HYDROCHLORIDE\OMEPRAZOLE\OMEPRAZOLE MAGNESIUM
  2. ASPIRIN [Suspect]
     Active Substance: ASPIRIN
  3. SULFAMETHOXAZOLE [Suspect]
     Active Substance: SULFAMETHOXAZOLE
  4. TRIMETHOPRIM [Suspect]
     Active Substance: TRIMETHOPRIM
  5. ALLOPURINOL [Suspect]
     Active Substance: ALLOPURINOL
  6. ALFACALCIDOL [Suspect]
     Active Substance: ALFACALCIDOL
  7. CALCIUM CARBONATE [Suspect]
     Active Substance: CALCIUM CARBONATE
  8. ACYCLOVIR [Suspect]
     Active Substance: ACYCLOVIR
  9. TACROLIMUS [Concomitant]
     Active Substance: TACROLIMUS
  10. MYCOPHENOLATE MOFETIL [Concomitant]
     Active Substance: MYCOPHENOLATE MOFETIL
  11. PREDNISONE [Concomitant]
     Active Substance: PREDNISONE
  12. BISOPROLOL [Concomitant]
     Active Substance: BISOPROLOL\BISOPROLOL FUMARATE
  13. DOXAZOSIN [Concomitant]
     Active Substance: DOXAZOSIN MESYLATE
  14. CLONIDINE [Concomitant]
     Active Substance: CLONIDINE
  15. LEVOTHYROXINE [Concomitant]
     Active Substance: LEVOTHYROXINE\LEVOTHYROXINE SODIUM

REACTIONS (14)
  - Hypovolaemic shock [Unknown]
  - Haematoma [Recovered/Resolved]
  - Graft ischaemia [Unknown]
  - Vascular pseudoaneurysm [Unknown]
  - Leukocytosis [Unknown]
  - Neutrophilia [Unknown]
  - Lymphopenia [Unknown]
  - Eosinopenia [Unknown]
  - Inflammatory marker increased [Unknown]
  - Cardiac arrest [Recovered/Resolved]
  - Implant site extravasation [Unknown]
  - Venous thrombosis limb [Recovered/Resolved]
  - Candida infection [Unknown]
  - Staphylococcal infection [Unknown]
